FAERS Safety Report 7349376-6 (Version None)
Quarter: 2011Q1

REPORT INFORMATION
  Report Type: 
  Country: None (occurrence: None)
  Receive Date: 20110314
  Receipt Date: 20110111
  Transmission Date: 20110831
  Serious: No
  Sender: FDA-Public Use
  Company Number: US-ABBOTT-10P-163-0674734-00

PATIENT
  Sex: Male
  Weight: 70.824 kg

DRUGS (1)
  1. DEPAKOTE [Suspect]
     Indication: MIGRAINE
     Dates: start: 20090101

REACTIONS (2)
  - LABORATORY TEST ABNORMAL [None]
  - MIGRAINE [None]
